FAERS Safety Report 7371435-2 (Version None)
Quarter: 2011Q1

REPORT INFORMATION
  Report Type: 
  Country: None (occurrence: None)
  Receive Date: 20110324
  Receipt Date: 20110316
  Transmission Date: 20110831
  Serious: Yes (Other)
  Sender: FDA-Public Use
  Company Number: US-JNJFOC-20110307414

PATIENT
  Sex: Female
  Weight: 70.31 kg

DRUGS (5)
  1. SELEGILINE [Concomitant]
     Indication: DEPRESSION
     Route: 048
  2. LEVAQUIN [Suspect]
     Indication: INFECTION
     Route: 048
  3. NEXIUM [Concomitant]
     Indication: GASTROOESOPHAGEAL REFLUX DISEASE
     Route: 048
  4. UNSPECIFED MEDICATIONS [Concomitant]
     Indication: PRODUCT USED FOR UNKNOWN INDICATION
     Route: 065
  5. LEVAQUIN [Suspect]
     Indication: EAR INFECTION
     Route: 048

REACTIONS (4)
  - PAIN IN EXTREMITY [None]
  - PAIN [None]
  - SUICIDAL IDEATION [None]
  - MUSCLE SPASMS [None]
